FAERS Safety Report 7129438-9 (Version None)
Quarter: 2010Q4

REPORT INFORMATION
  Report Type: 
  Country: None (occurrence: None)
  Receive Date: 20101130
  Receipt Date: 20101118
  Transmission Date: 20110411
  Serious: Yes (Other)
  Sender: FDA-Public Use
  Company Number: FR-TEVA-256641ISR

PATIENT
  Sex: Male

DRUGS (3)
  1. DIAZEPAM [Suspect]
     Indication: ALCOHOL DETOXIFICATION
     Route: 048
     Dates: start: 20100727
  2. RENNIE (CALCIUM, MAGNESIUM) [Concomitant]
     Indication: ABDOMINAL PAIN UPPER
  3. ACAMPROSATE [Concomitant]
     Indication: GASTRIC DISORDER

REACTIONS (3)
  - DRUG DEPENDENCE [None]
  - GAMMA-GLUTAMYLTRANSFERASE INCREASED [None]
  - INCORRECT DRUG ADMINISTRATION DURATION [None]
